FAERS Safety Report 25895182 (Version 1)
Quarter: 2025Q4

REPORT INFORMATION
  Report Type: Spontaneous
  Country: US (occurrence: None)
  Receive Date: 20251007
  Receipt Date: 20251007
  Transmission Date: 20260119
  Serious: Yes (Hospitalization)
  Sender: FDA-CTU
  Company Number: None

PATIENT
  Age: 72 Year
  Sex: Male

DRUGS (2)
  1. VYNDAMAX [Suspect]
     Active Substance: TAFAMIDIS
     Indication: Amyloidosis
     Dosage: TAKE 1 CPSULE (61 MG TOTAL) BY MOUTH DAILY
     Route: 048
     Dates: start: 20240322
  2. WARFARIN [Suspect]
     Active Substance: WARFARIN

REACTIONS (5)
  - Dyspnoea exertional [None]
  - Dyspnoea [None]
  - Asthenia [None]
  - Carotid artery occlusion [None]
  - Localised infection [None]
